FAERS Safety Report 7788961-4 (Version None)
Quarter: 2011Q3

REPORT INFORMATION
  Report Type: 
  Country: None (occurrence: None)
  Receive Date: 20110930
  Receipt Date: 20110919
  Transmission Date: 20111222
  Serious: Yes (Hospitalization)
  Sender: FDA-Public Use
  Company Number: PHEH2011US01962

PATIENT
  Sex: Male
  Weight: 126 kg

DRUGS (2)
  1. EXJADE [Suspect]
     Indication: ACUTE MYELOID LEUKAEMIA
     Dosage: 2500 MG, QD
     Route: 048
     Dates: start: 20110906, end: 20110912
  2. CHEMOTHERAPEUTICS [Concomitant]
     Dosage: UNK

REACTIONS (5)
  - RASH [None]
  - PLATELET DISORDER [None]
  - RASH GENERALISED [None]
  - PYREXIA [None]
  - ABDOMINAL DISCOMFORT [None]
